FAERS Safety Report 8350670-0 (Version None)
Quarter: 2012Q2

REPORT INFORMATION
  Report Type: 
  Country: None (occurrence: None)
  Receive Date: 20120510
  Receipt Date: 20120504
  Transmission Date: 20120825
  Serious: Yes (Other)
  Sender: FDA-Public Use
  Company Number: US-JNJFOC-20100805897

PATIENT
  Sex: Male

DRUGS (3)
  1. LEVAQUIN [Suspect]
     Indication: SURGERY
     Route: 048
     Dates: start: 20040101, end: 20040101
  2. MULTI-VITAMINS [Concomitant]
     Route: 065
  3. VITAMIN B-12 [Concomitant]
     Route: 065

REACTIONS (5)
  - ROTATOR CUFF SYNDROME [None]
  - CARPAL TUNNEL SYNDROME [None]
  - TENOSYNOVITIS STENOSANS [None]
  - LIGAMENT SPRAIN [None]
  - FALL [None]
